FAERS Safety Report 12975473 (Version 1)
Quarter: 2016Q4

REPORT INFORMATION
  Report Type: Spontaneous
  Country: IN (occurrence: IN)
  Receive Date: 20161125
  Receipt Date: 20161125
  Transmission Date: 20170207
  Serious: Yes (Other)
  Sender: FDA-Public Use
  Company Number: IN-B.I. PHARMACEUTICALS,INC./RIDGEFIELD-2016-BI-081180

PATIENT
  Age: 58 Year
  Sex: Female

DRUGS (7)
  1. RASAGILINE [Concomitant]
     Active Substance: RASAGILINE
     Indication: PARKINSON^S DISEASE
     Route: 065
  2. LEVODOPA/ CARBIDOPA [Concomitant]
     Active Substance: CARBIDOPA\LEVODOPA
     Indication: PARKINSON^S DISEASE
     Dosage: 100 /25 MG
     Route: 065
  3. SIFROL [Suspect]
     Active Substance: PRAMIPEXOLE
     Dosage: EXTENDED RELEASE; ESCALATED AFTER A MONTH
     Route: 065
  4. SIFROL [Suspect]
     Active Substance: PRAMIPEXOLE
     Indication: PARKINSON^S DISEASE
     Dosage: EXTENDED RELEASE; ESCALATED AFTER 3 MONTHS
     Route: 065
  5. LEVODOPA/ CARBIDOPA [Concomitant]
     Active Substance: CARBIDOPA\LEVODOPA
     Dosage: 100/25 MG
     Route: 065
  6. TRIHEXPHENIDYL [Concomitant]
     Indication: PARKINSON^S DISEASE
     Route: 065
  7. SIFROL [Suspect]
     Active Substance: PRAMIPEXOLE
     Route: 065

REACTIONS (2)
  - Dystonia [Recovered/Resolved]
  - Muscle contracture [Recovered/Resolved]
